FAERS Safety Report 15918994 (Version 2)
Quarter: 2019Q1

REPORT INFORMATION
  Report Type: Spontaneous
  Country: US (occurrence: US)
  Receive Date: 20190205
  Receipt Date: 20190205
  Transmission Date: 20190417
  Serious: No
  Sender: FDA-Public Use
  Company Number: US-ALLERGAN-1835379US

PATIENT
  Sex: Female

DRUGS (1)
  1. URSODEOXYCHOLIC ACID - BP [Suspect]
     Active Substance: URSODIOL
     Indication: PRIMARY BILIARY CHOLANGITIS
     Dosage: 3 DF, QD
     Route: 065
     Dates: start: 2003

REACTIONS (2)
  - Constipation [Unknown]
  - Diarrhoea [Unknown]
